FAERS Safety Report 7633470-6 (Version None)
Quarter: 2011Q3

REPORT INFORMATION
  Report Type: 
  Country: None (occurrence: None)
  Receive Date: 20110725
  Receipt Date: 20110325
  Transmission Date: 20111222
  Serious: Yes (Other)
  Sender: FDA-Public Use
  Company Number: US-BRISTOL-MYERS SQUIBB COMPANY-15637150

PATIENT

DRUGS (1)
  1. SPRYCEL [Suspect]

REACTIONS (3)
  - PANCYTOPENIA [None]
  - NEOPLASM MALIGNANT [None]
  - VITAMIN B12 DEFICIENCY [None]
